FAERS Safety Report 7646586-5 (Version None)
Quarter: 2011Q3

REPORT INFORMATION
  Report Type: 
  Country: None (occurrence: None)
  Receive Date: 20110801
  Receipt Date: 20110721
  Transmission Date: 20111222
  Serious: Yes (Hospitalization, Other)
  Sender: FDA-Public Use
  Company Number: US-BAYER-2010-007088

PATIENT
  Age: 24 Year
  Sex: Female
  Weight: 104 kg

DRUGS (7)
  1. DROSPIRENONE AND ETHINYL ESTRADIOL [Suspect]
     Indication: PRODUCT USED FOR UNKNOWN INDICATION
     Dosage: UNK
     Dates: start: 20081010, end: 20090813
  2. TYLENOL W/ CODEINE [Concomitant]
     Indication: PAIN
  3. PROTONIX [Concomitant]
  4. KINEVAC [Concomitant]
  5. TYLENOL-500 [Concomitant]
     Dosage: UNK UNK, PRN
  6. CARAFATE [Concomitant]
     Dosage: 1 MG, TID
  7. KAPIDEX [Concomitant]
     Dosage: 60 MG, QD

REACTIONS (2)
  - CHOLECYSTECTOMY [None]
  - BILIARY COLIC [None]
